FAERS Safety Report 9592338 (Version 1)
Quarter: 2013Q4

REPORT INFORMATION
  Report Type: Spontaneous
  Country: US (occurrence: None)
  Receive Date: 20131003
  Receipt Date: 20131003
  Transmission Date: 20140711
  Serious: No
  Sender: FDA-Public Use
  Company Number: None

PATIENT
  Age: 36 Year
  Sex: Female
  Weight: 73.94 kg

DRUGS (1)
  1. CLOMIPHENE [Suspect]
     Indication: PROGESTERONE INCREASED
     Dosage: 1 TABLET ONCE DAILY TAKEN BY MOUTH
     Route: 048
     Dates: start: 20130913, end: 20130917

REACTIONS (6)
  - Acne [None]
  - Weight increased [None]
  - Irritability [None]
  - Depression [None]
  - Cognitive disorder [None]
  - Feeling abnormal [None]
